FAERS Safety Report 7892833-4 (Version None)
Quarter: 2011Q4

REPORT INFORMATION
  Report Type: 
  Country: None (occurrence: None)
  Receive Date: 20111104
  Receipt Date: 20111021
  Transmission Date: 20120403
  Serious: Yes (Other)
  Sender: FDA-Public Use
  Company Number: SE-MYLANLABS-2011S1021968

PATIENT
  Sex: Female
  Weight: 68 kg

DRUGS (4)
  1. AZATHIOPRINE [Suspect]
     Dates: start: 20110915
  2. AZATHIOPRINE [Suspect]
     Dates: end: 20111010
  3. LEVOTHYROXINE SODIUM [Concomitant]
     Indication: PRODUCT USED FOR UNKNOWN INDICATION
  4. AZATHIOPRINE [Suspect]
     Indication: POLYMYALGIA RHEUMATICA
     Dates: start: 20110809

REACTIONS (5)
  - PAIN [None]
  - URINARY INCONTINENCE [None]
  - NAUSEA [None]
  - RENAL DISORDER [None]
  - LIVER DISORDER [None]
